FAERS Safety Report 15615996 (Version 1)
Quarter: 2018Q4

REPORT INFORMATION
  Report Type: Report from Study
  Country: US (occurrence: US)
  Receive Date: 20181114
  Receipt Date: 20181114
  Transmission Date: 20190205
  Serious: Yes (Hospitalization)
  Sender: FDA-Public Use
  Company Number: US-TEVA-2018-US-974240

PATIENT
  Age: 82 Year
  Sex: Male

DRUGS (2)
  1. FONDAPARINUX [Suspect]
     Active Substance: FONDAPARINUX
     Indication: HEPARIN-INDUCED THROMBOCYTOPENIA
     Dosage: 7.5 MILLIGRAM DAILY;
     Route: 065
  2. HEPARIN [Suspect]
     Active Substance: HEPARIN SODIUM
     Indication: CARDIAC VENTRICULAR THROMBOSIS
     Dosage: CONTINUOUS INFUSION
     Route: 050

REACTIONS (3)
  - Off label use [Unknown]
  - Deep vein thrombosis [Recovering/Resolving]
  - Heparin-induced thrombocytopenia [Recovering/Resolving]
